FAERS Safety Report 9523230 (Version 1)
Quarter: 2013Q3

REPORT INFORMATION
  Report Type: Spontaneous
  Country: US (occurrence: US)
  Receive Date: 20130913
  Receipt Date: 20130913
  Transmission Date: 20140515
  Serious: Yes (Other)
  Sender: FDA-Public Use
  Company Number: US-TEVA-432151USA

PATIENT
  Age: 22 Year
  Sex: Female
  Weight: 106.69 kg

DRUGS (1)
  1. PARAGARD 380A [Suspect]
     Indication: CONTRACEPTION
     Route: 040
     Dates: start: 20130821, end: 20130909

REACTIONS (1)
  - Device dislocation [Recovered/Resolved]
